FAERS Safety Report 16500634 (Version 1)
Quarter: 2019Q2

REPORT INFORMATION
  Report Type: Spontaneous
  Country: US (occurrence: US)
  Receive Date: 20190520
  Receipt Date: 20190520
  Transmission Date: 20190711
  Serious: No
  Sender: FDA-Public Use
  Company Number: None

PATIENT
  Age: 41 Year
  Sex: Female

DRUGS (1)
  1. METHOTREXATE 1GM/40ML SDV INJ [Suspect]
     Active Substance: METHOTREXATE
     Dosage: ?          OTHER STRENGTH:1GM/40ML;?
     Dates: start: 201804, end: 201904

REACTIONS (1)
  - Drug ineffective [None]

NARRATIVE: CASE EVENT DATE: 20190520
